FAERS Safety Report 4471857-3 (Version None)
Quarter: 2004Q4

REPORT INFORMATION
  Report Type: 
  Country: None (occurrence: None)
  Receive Date: 20041006
  Receipt Date: 20040923
  Transmission Date: 20050328
  Serious: Yes (Hospitalization)
  Sender: FDA-Public Use
  Company Number: 2004070456

PATIENT
  Age: 66 Year
  Sex: Female
  Weight: 63 kg

DRUGS (8)
  1. SORTIS (ATORVASTATIN) [Suspect]
     Indication: HYPERLIPIDAEMIA
     Dosage: 40 MG (40 MG, 1 IN 1 D), ORAL
     Route: 048
  2. PHENPROCOUMON (PHENPROCOUMON) [Suspect]
     Indication: PROPHYLAXIS
     Dosage: 3 MG (1 IN 1 D), ORAL
     Route: 048
     Dates: start: 20010901, end: 20040413
  3. ENOXAPARIN SODIUM [Suspect]
     Indication: PROPHYLAXIS
     Dosage: 1.4 ML (2 IN 1 D), SUBCUTANEOUS
     Route: 058
     Dates: start: 20040414, end: 20040418
  4. KARVEA HCT (HYDROCHLOROTHIAZIDE, IRBESARTAN) [Suspect]
     Indication: HYPERTENSION
     Dosage: 150/12.5 MG (1 IN 1 D), ORAL
     Route: 048
  5. METOPROLOL SUCCINATE [Concomitant]
  6. DIGITOXIN TAB [Concomitant]
  7. EZETEMIBE (EZETEMIBE) [Concomitant]
  8. MOXONIDINE (MOXONIDINE) [Concomitant]

REACTIONS (4)
  - DRUG INTERACTION [None]
  - HAEMATOMA [None]
  - LIVER DISORDER [None]
  - PROTHROMBIN TIME PROLONGED [None]
